FAERS Safety Report 8442950-5 (Version None)
Quarter: 2012Q2

REPORT INFORMATION
  Report Type: 
  Country: None (occurrence: None)
  Receive Date: 20120615
  Receipt Date: 20120613
  Transmission Date: 20120825
  Serious: No
  Sender: FDA-Public Use
  Company Number: US-PFIZER INC-2012143319

PATIENT
  Sex: Female
  Weight: 63.039 kg

DRUGS (2)
  1. NICOTROL [Suspect]
     Indication: SMOKING CESSATION THERAPY
     Dosage: UNK, 1X/DAY
     Route: 055
     Dates: start: 20120611
  2. ESTRADIOL [Concomitant]
     Dosage: UNK

REACTIONS (1)
  - CHOKING SENSATION [None]
